FAERS Safety Report 24644254 (Version 3)
Quarter: 2024Q4

REPORT INFORMATION
  Report Type: Report from Study
  Country: PT (occurrence: PT)
  Receive Date: 20241120
  Receipt Date: 20241218
  Transmission Date: 20250115
  Serious: Yes (Other)
  Sender: ABBVIE
  Company Number: PT-ABBVIE-5996776

PATIENT
  Age: 75 Year
  Sex: Female

DRUGS (9)
  1. CARBIDOPA\LEVODOPA [Suspect]
     Active Substance: CARBIDOPA\LEVODOPA
     Indication: Parkinson^s disease
     Dosage: 20 MG + 5 MG ?FREQUENCY TEXT: MORN:13.4CC;MAINT:1.9CC/H;EXTRA:1?LAST ADMIN DATE: 2021
     Route: 050
     Dates: start: 20210721
  2. CARBIDOPA\LEVODOPA [Suspect]
     Active Substance: CARBIDOPA\LEVODOPA
     Dosage: 20 MG + 5 MG?FREQUENCY TEXT: MORN:11.7CC;MAINT:4.6CC/H;EXTRA:2.5CC
     Route: 050
     Dates: start: 2024, end: 20241007
  3. CARBIDOPA\LEVODOPA [Suspect]
     Active Substance: CARBIDOPA\LEVODOPA
     Dosage: 20 MG + 5 MG (PEG)?FREQUENCY TEXT: MORN:11.7CC;MAINT:4.6CC/H;EXTRA:2.5CC
     Route: 050
     Dates: start: 20241007
  4. AMANTADINE HYDROCHLORIDE [Concomitant]
     Active Substance: AMANTADINE HYDROCHLORIDE
     Indication: Product used for unknown indication
     Dosage: FORM STRENGTH: 100 MILLIGRAMS?START DATE TEXT: BEFORE DUODOPA
  5. QUETIAPINE [Concomitant]
     Active Substance: QUETIAPINE
     Indication: Product used for unknown indication
     Dosage: FORM STRENGTH: 100 MILLIGRAMS?START DATE TEXT: BEFORE DUODOPA
  6. CLONAZEPAM [Concomitant]
     Active Substance: CLONAZEPAM
     Indication: Product used for unknown indication
     Dosage: FORM STRENGTH: 0.5 MILLIGRAM ?START DATE TEXT: BEFORE DUODOPA
  7. XADAGO [Concomitant]
     Active Substance: SAFINAMIDE MESYLATE
     Indication: Product used for unknown indication
     Dosage: FORM STRENGTH: 50 MILLIGRAMS?START DATE TEXT: BEFORE DUODOPS
  8. SERTRALINE [Concomitant]
     Active Substance: SERTRALINE HYDROCHLORIDE
     Indication: Product used for unknown indication
     Dosage: FORM STRENGTH: 100 MILLIGRAMS ?START DATE TEXT: BEFORE DUODOPA
  9. BENSERAZIDE HYDROCHLORIDE\LEVODOPA [Concomitant]
     Active Substance: BENSERAZIDE HYDROCHLORIDE\LEVODOPA
     Indication: Product used for unknown indication
     Dosage: (LEVODOPA + BENSERAZIDE)?FORM STRENGTH: 200: MILLIGRAM?START DATE TEXT: BEFORE DUODOPA

REACTIONS (4)
  - Escherichia urinary tract infection [Recovered/Resolved]
  - Confusional state [Not Recovered/Not Resolved]
  - Vaginal discharge [Not Recovered/Not Resolved]
  - Agitation [Recovering/Resolving]

NARRATIVE: CASE EVENT DATE: 20241101
